FAERS Safety Report 9261005 (Version 1)
Quarter: 2013Q2

REPORT INFORMATION
  Report Type: Spontaneous
  Country: US (occurrence: US)
  Receive Date: 20130429
  Receipt Date: 20130429
  Transmission Date: 20140414
  Serious: No
  Sender: FDA-Public Use
  Company Number: US-AMGEN-USASP2012042386

PATIENT
  Age: 42 Year
  Sex: Male

DRUGS (1)
  1. SENSIPAR [Suspect]
     Indication: HYPERPARATHYROIDISM SECONDARY
     Dosage: 90 MG, QD
     Route: 048

REACTIONS (3)
  - Dysgeusia [Recovered/Resolved]
  - Abdominal distension [Recovered/Resolved]
  - Blood calcium decreased [Unknown]
